FAERS Safety Report 14155148 (Version 3)
Quarter: 2024Q1

REPORT INFORMATION
  Report Type: Report from Study
  Country: US (occurrence: US)
  Receive Date: 20171103
  Receipt Date: 20240306
  Transmission Date: 20240410
  Serious: No
  Sender: FDA-Public Use
  Company Number: US-PUMA BIOTECHNOLOGY, LTD.-2017US012698

PATIENT

DRUGS (7)
  1. NERLYNX [Suspect]
     Active Substance: NERATINIB
     Indication: Breast cancer
     Dosage: 6 TABLETS, DAILY
     Route: 048
     Dates: start: 20170917, end: 20170921
  2. NERLYNX [Suspect]
     Active Substance: NERATINIB
     Dosage: 80 MG(2 TABLETS), DAILY
     Route: 048
     Dates: start: 20171007, end: 20171013
  3. NERLYNX [Suspect]
     Active Substance: NERATINIB
     Dosage: 120 MG(3 TABLETS), DAILY
     Route: 048
     Dates: start: 20171014, end: 20171020
  4. NERLYNX [Suspect]
     Active Substance: NERATINIB
     Dosage: 160 MG(4 TABLETS), DAILY
     Route: 048
     Dates: start: 20171021, end: 20171027
  5. NERLYNX [Suspect]
     Active Substance: NERATINIB
     Dosage: 200 MG, DAILY
     Route: 048
     Dates: start: 20171028, end: 20171103
  6. NERLYNX [Suspect]
     Active Substance: NERATINIB
     Dosage: 160 MG, DAILY
     Route: 048
     Dates: start: 20171107
  7. LOPERAMIDE [Concomitant]
     Active Substance: LOPERAMIDE
     Indication: Product used for unknown indication
     Dosage: UNK

REACTIONS (4)
  - Asthenia [Recovered/Resolved]
  - Diarrhoea [Recovered/Resolved]
  - Dehydration [Recovered/Resolved]
  - Constipation [Recovered/Resolved]

NARRATIVE: CASE EVENT DATE: 20170917
